FAERS Safety Report 7352302-7 (Version None)
Quarter: 2011Q1

REPORT INFORMATION
  Report Type: 
  Country: None (occurrence: None)
  Receive Date: 20110304
  Receipt Date: 20110221
  Transmission Date: 20110831
  Serious: Yes (Other)
  Sender: FDA-Public Use
  Company Number: 027200

PATIENT
  Sex: Female

DRUGS (1)
  1. CIMZIA [Suspect]
     Indication: CROHN'S DISEASE
     Dosage: (200 MG 1X/2 WEEKS SUBCUTANEOUS)
     Route: 058
     Dates: start: 20100723

REACTIONS (6)
  - DRY SKIN [None]
  - BODY TEMPERATURE DECREASED [None]
  - NAUSEA [None]
  - ASTHENIA [None]
  - SKIN EXFOLIATION [None]
  - PRURITUS [None]
